FAERS Safety Report 14909254 (Version 1)
Quarter: 2018Q2

REPORT INFORMATION
  Report Type: Spontaneous
  Country: US (occurrence: US)
  Receive Date: 20180430
  Receipt Date: 20180430
  Transmission Date: 20180711
  Serious: Yes (Disabling)
  Sender: FDA-Public Use
  Company Number: None

PATIENT
  Age: 22 Year
  Sex: Female
  Weight: 54 kg

DRUGS (4)
  1. VITAMIN D [Concomitant]
     Active Substance: CHOLECALCIFEROL
  2. METRONIDAZOLE. [Suspect]
     Active Substance: METRONIDAZOLE
     Indication: BACTERIAL VAGINOSIS
     Dosage: ?          QUANTITY:14 TABLET(S);?
     Route: 048
     Dates: start: 20141019, end: 20141022
  3. ALBUTEROL. [Concomitant]
     Active Substance: ALBUTEROL
  4. BENADRYL [Concomitant]
     Active Substance: DIPHENHYDRAMINE HYDROCHLORIDE

REACTIONS (9)
  - Muscle spasms [None]
  - Nerve injury [None]
  - Muscle contractions involuntary [None]
  - Hypoaesthesia [None]
  - Vaginal disorder [None]
  - Tremor [None]
  - Paraesthesia [None]
  - Feeling abnormal [None]
  - Neuropathy peripheral [None]

NARRATIVE: CASE EVENT DATE: 20141019
